FAERS Safety Report 18818651 (Version 2)
Quarter: 2021Q2

REPORT INFORMATION
  Report Type: Spontaneous
  Country: DE (occurrence: DE)
  Receive Date: 20210202
  Receipt Date: 20210611
  Transmission Date: 20210717
  Serious: Yes (Death, Other)
  Sender: FDA-Public Use
  Company Number: DE-SHILPA MEDICARE LIMITED-SML-DE-2021-00080

PATIENT
  Age: 55 Year
  Sex: Female

DRUGS (2)
  1. DOCETAXEL, UNKNOWN [Suspect]
     Active Substance: DOCETAXEL
     Indication: LUNG ADENOCARCINOMA
     Route: 065
     Dates: start: 20190912
  2. VARGATEF [Suspect]
     Active Substance: NINTEDANIB
     Indication: LUNG ADENOCARCINOMA
     Route: 065
     Dates: start: 20190912, end: 20200213

REACTIONS (7)
  - Diarrhoea [Unknown]
  - Jugular vein thrombosis [Not Recovered/Not Resolved]
  - Disease progression [Unknown]
  - Nausea [Unknown]
  - Febrile neutropenia [Unknown]
  - Diarrhoea [Unknown]
  - Death [Fatal]

NARRATIVE: CASE EVENT DATE: 20191007
